APPROVED DRUG PRODUCT: METHYLPREDNISOLONE ACETATE
Active Ingredient: METHYLPREDNISOLONE ACETATE
Strength: 80MG/ML
Dosage Form/Route: INJECTABLE;INJECTION
Application: A216502 | Product #002 | TE Code: AB
Applicant: AMNEAL EU LTD
Approved: Nov 3, 2023 | RLD: No | RS: No | Type: RX